FAERS Safety Report 15772867 (Version 1)
Quarter: 2018Q4

REPORT INFORMATION
  Report Type: Report from Study
  Country: DE (occurrence: DE)
  Receive Date: 20181228
  Receipt Date: 20181228
  Transmission Date: 20190205
  Serious: Yes (Hospitalization)
  Sender: FDA-Public Use
  Company Number: DE-SHIRE-2013BAX006635

PATIENT

DRUGS (24)
  1. ADVATE [Suspect]
     Active Substance: ANTIHEMOPHILIC FACTOR, HUMAN RECOMBINANT
     Dosage: 2000IU (INTERNATIONAL UNIT)AS NEEDED
     Route: 042
     Dates: start: 20120727, end: 20121109
  2. ADVATE [Suspect]
     Active Substance: ANTIHEMOPHILIC FACTOR, HUMAN RECOMBINANT
     Dosage: 2000IU (INTERNATIONAL UNIT)ONCE
     Route: 042
     Dates: start: 20121201, end: 20121201
  3. ADVATE [Suspect]
     Active Substance: ANTIHEMOPHILIC FACTOR, HUMAN RECOMBINANT
     Dosage: 2000IU (INTERNATIONAL UNIT)ONCE
     Route: 042
  4. ADVATE [Suspect]
     Active Substance: ANTIHEMOPHILIC FACTOR, HUMAN RECOMBINANT
     Dosage: 2000IU (INTERNATIONAL UNIT)
     Route: 042
     Dates: start: 20121017
  5. LAMIVUDIN [Concomitant]
     Active Substance: LAMIVUDINE
     Indication: HIV INFECTION
     Dosage: 300MILLIGRAM1X A DAY
     Route: 048
     Dates: start: 20001001
  6. ADVATE [Suspect]
     Active Substance: ANTIHEMOPHILIC FACTOR, HUMAN RECOMBINANT
     Dosage: 2000IU (INTERNATIONAL UNIT)1X A DAY
     Route: 042
     Dates: start: 20121203
  7. ATAZANAVIR. [Concomitant]
     Active Substance: ATAZANAVIR SULFATE
     Indication: HIV INFECTION
     Dosage: 150MILLIGRAM2X A DAY
     Route: 048
     Dates: start: 20050301
  8. OXYCODONE [Concomitant]
     Active Substance: OXYCODONE
     Indication: PAIN
     Dosage: 5MILLIGRAMAS NEEDED
     Route: 048
     Dates: start: 20110101
  9. ETORICOXIB. [Concomitant]
     Active Substance: ETORICOXIB
     Indication: ARTHROPATHY
  10. ADVATE [Suspect]
     Active Substance: ANTIHEMOPHILIC FACTOR, HUMAN RECOMBINANT
     Dosage: 6000IU (INTERNATIONAL UNIT)AS NEEDED
     Route: 042
     Dates: start: 20121109
  11. LISINOPRIL. [Concomitant]
     Active Substance: LISINOPRIL
     Indication: HYPERTENSION
     Dosage: 5MILLIGRAM1X A DAY
     Route: 048
     Dates: start: 20110720, end: 20120104
  12. ETORICOXIB. [Concomitant]
     Active Substance: ETORICOXIB
     Indication: PAIN
     Dosage: 60MILLIGRAMAS NEEDED
     Route: 048
     Dates: start: 20060501
  13. ADVATE [Suspect]
     Active Substance: ANTIHEMOPHILIC FACTOR, HUMAN RECOMBINANT
     Dosage: 2000IU (INTERNATIONAL UNIT)AS NEEDED
     Route: 042
     Dates: start: 20121014
  14. TENOFOVIR [Concomitant]
     Active Substance: TENOFOVIR
     Indication: HIV INFECTION
     Dosage: 245MILLIGRAM1X A DAY
     Route: 048
     Dates: start: 20040401
  15. RITONAVIR. [Concomitant]
     Active Substance: RITONAVIR
     Indication: HIV INFECTION
     Dosage: 100MILLIGRAM1X A DAY
     Route: 048
     Dates: start: 20050701
  16. ADVATE [Suspect]
     Active Substance: ANTIHEMOPHILIC FACTOR, HUMAN RECOMBINANT
     Indication: PROPHYLAXIS
     Dosage: 3000IU (INTERNATIONAL UNIT)1X A DAY
     Route: 042
     Dates: start: 20121203
  17. ADVATE [Suspect]
     Active Substance: ANTIHEMOPHILIC FACTOR, HUMAN RECOMBINANT
     Dosage: 2000IU (INTERNATIONAL UNIT)AS NEEDED
     Route: 042
     Dates: start: 20121021
  18. ADVATE [Suspect]
     Active Substance: ANTIHEMOPHILIC FACTOR, HUMAN RECOMBINANT
     Dosage: 2000IU (INTERNATIONAL UNIT)AS NEEDED
     Route: 042
     Dates: start: 20121022
  19. ADVATE [Suspect]
     Active Substance: ANTIHEMOPHILIC FACTOR, HUMAN RECOMBINANT
     Dosage: 2000IU (INTERNATIONAL UNIT)
     Route: 042
     Dates: start: 20121101
  20. OXYCODONE [Concomitant]
     Active Substance: OXYCODONE
     Indication: ARTHROPATHY
  21. RIBAVIRIN. [Concomitant]
     Active Substance: RIBAVIRIN
     Indication: HEPATITIS C
     Dosage: UNK
     Route: 065
     Dates: start: 200107, end: 200206
  22. ADVATE [Suspect]
     Active Substance: ANTIHEMOPHILIC FACTOR, HUMAN RECOMBINANT
     Indication: FACTOR VIII DEFICIENCY
     Dosage: 2000IU (INTERNATIONAL UNIT)AS NEEDED
     Route: 042
     Dates: start: 20120930
  23. ADVATE [Suspect]
     Active Substance: ANTIHEMOPHILIC FACTOR, HUMAN RECOMBINANT
     Dates: start: 20121109
  24. INTERFERON [Concomitant]
     Active Substance: INTERFERON
     Indication: HEPATITIS C
     Dosage: UNK
     Route: 065
     Dates: start: 200107, end: 200206

REACTIONS (2)
  - Condition aggravated [Recovering/Resolving]
  - Haemarthrosis [Recovering/Resolving]

NARRATIVE: CASE EVENT DATE: 20121126
